FAERS Safety Report 4981950-4 (Version None)
Quarter: 2006Q2

REPORT INFORMATION
  Report Type: 
  Country: None (occurrence: None)
  Receive Date: 20060425
  Receipt Date: 20060117
  Transmission Date: 20061013
  Serious: Yes (Hospitalization)
  Sender: FDA-Public Use
  Company Number: US-MERCK-0601USA02222

PATIENT
  Age: 63 Year
  Sex: Male
  Weight: 82 kg

DRUGS (11)
  1. VIOXX [Suspect]
     Indication: PAIN IN EXTREMITY
     Route: 048
     Dates: start: 20000802, end: 20041024
  2. VIOXX [Suspect]
     Indication: BACK PAIN
     Route: 048
     Dates: start: 20000802, end: 20041024
  3. ZOLOFT [Concomitant]
     Indication: DEPRESSION
     Route: 065
  4. AMITRIPTYLINE HYDROCHLORIDE [Concomitant]
     Indication: PAIN
     Route: 065
     Dates: start: 19990901, end: 20010101
  5. TENORETIC 100 [Concomitant]
     Indication: HYPERTENSION
     Route: 065
     Dates: start: 20000301, end: 20021001
  6. NAPROXEN [Concomitant]
     Indication: PAIN
     Route: 065
     Dates: start: 19990101
  7. ZANTAC [Concomitant]
     Indication: DYSPEPSIA
     Route: 065
  8. ASPIRIN [Concomitant]
     Indication: CARDIAC DISORDER
     Route: 065
     Dates: start: 20020101
  9. CODEINE [Concomitant]
     Route: 065
  10. ZANAFLEX [Concomitant]
     Indication: PAIN
     Route: 065
     Dates: start: 20020401, end: 20020801
  11. SERZONE [Concomitant]
     Indication: DEPRESSION
     Route: 065

REACTIONS (9)
  - BLOOD CHOLESTEROL INCREASED [None]
  - CHEST PAIN [None]
  - CORONARY ARTERY DISEASE [None]
  - DEEP VEIN THROMBOSIS [None]
  - DEPRESSION [None]
  - DYSPEPSIA [None]
  - HYPERTENSION [None]
  - MYOCARDIAL INFARCTION [None]
  - ULCER [None]
